FAERS Safety Report 7031826-6 (Version None)
Quarter: 2010Q4

REPORT INFORMATION
  Report Type: 
  Country: None (occurrence: None)
  Receive Date: 20101007
  Receipt Date: 20100928
  Transmission Date: 20110411
  Serious: No
  Sender: FDA-Public Use
  Company Number: US-BIOGENIDEC-2010BI034178

PATIENT
  Sex: Female

DRUGS (3)
  1. TYSABRI [Suspect]
     Indication: MULTIPLE SCLEROSIS
     Route: 042
     Dates: start: 20080422
  2. THYROID MEDICINE (NOS) [Concomitant]
     Indication: THYROID FUNCTION TEST ABNORMAL
  3. THYROID MEDICINE (NOS) [Concomitant]

REACTIONS (3)
  - CARDIOVASCULAR DISORDER [None]
  - FEELING COLD [None]
  - PERIPHERAL COLDNESS [None]
